FAERS Safety Report 15929455 (Version 1)
Quarter: 2019Q1

REPORT INFORMATION
  Report Type: Spontaneous
  Country: FR (occurrence: FR)
  Receive Date: 20190206
  Receipt Date: 20190206
  Transmission Date: 20190417
  Serious: Yes (Hospitalization)
  Sender: FDA-Public Use
  Company Number: FR-BAUSCH-BL-2019-003395

PATIENT
  Age: 60 Year
  Sex: Female
  Weight: 53 kg

DRUGS (4)
  1. VELCADE [Suspect]
     Active Substance: BORTEZOMIB
     Indication: AMYLOIDOSIS
     Dosage: DOSAGE FORM: LYOPHILIZED POWDER (START TIME: 16:50 AND STOP TIME: 12: 15)
     Route: 058
     Dates: start: 20180820, end: 20190114
  2. DEXAMETHASONE. [Suspect]
     Active Substance: DEXAMETHASONE
     Indication: AMYLOIDOSIS
     Dosage: START TIME: 13: 45
     Route: 048
     Dates: start: 20180820, end: 20190115
  3. CYCLOPHOSPHAMIDE. [Suspect]
     Active Substance: CYCLOPHOSPHAMIDE
     Indication: AMYLOIDOSIS
     Dosage: (START TIME: 15: 53 AND STOP TIME: 12:10)
     Route: 048
     Dates: start: 20180820, end: 20190114
  4. DARATUMUMAB [Suspect]
     Active Substance: DARATUMUMAB
     Indication: AMYLOIDOSIS
     Route: 058
     Dates: start: 20180820, end: 20190114

REACTIONS (3)
  - Product use in unapproved indication [Unknown]
  - Infectious colitis [Not Recovered/Not Resolved]
  - Off label use [Unknown]

NARRATIVE: CASE EVENT DATE: 20180820
